FAERS Safety Report 24144185 (Version 1)
Quarter: 2024Q3

REPORT INFORMATION
  Report Type: Spontaneous
  Country: IT (occurrence: IT)
  Receive Date: 20240727
  Receipt Date: 20240727
  Transmission Date: 20241017
  Serious: Yes (Life-Threatening, Other)
  Sender: DR REDDYS
  Company Number: IT-GERMAN-LIT/ITA/24/0010858

PATIENT
  Age: 13 Year
  Sex: Male

DRUGS (11)
  1. BENDAMUSTINE [Suspect]
     Active Substance: BENDAMUSTINE
     Indication: Hodgkin^s disease
     Dosage: 90?MG/M2, DAYS?1 AND 2.
  2. DEXAMETHASONE [Suspect]
     Active Substance: DEXAMETHASONE
     Indication: Hodgkin^s disease
  3. CYTARABINE [Suspect]
     Active Substance: CYTARABINE
     Indication: Hodgkin^s disease
  4. CISPLATIN [Suspect]
     Active Substance: CISPLATIN
     Indication: Hodgkin^s disease
  5. BRENTUXIMAB VEDOTIN [Suspect]
     Active Substance: BRENTUXIMAB VEDOTIN
     Indication: Hodgkin^s disease
     Dosage: 2?CYCLES IV BRENTUXIMAB-VEDOTIN 1.8?MG/KG
     Route: 042
  6. VINCRISTINE [Concomitant]
     Active Substance: VINCRISTINE
     Indication: Hodgkin^s disease
  7. ETOPOSIDE [Concomitant]
     Active Substance: ETOPOSIDE
     Indication: Hodgkin^s disease
  8. PREDNISONE [Concomitant]
     Active Substance: PREDNISONE
     Indication: Hodgkin^s disease
  9. ADRIAMYCIN [Concomitant]
     Active Substance: DOXORUBICIN HYDROCHLORIDE
     Indication: Hodgkin^s disease
  10. CYCLOPHOSPHAMIDE [Concomitant]
     Active Substance: CYCLOPHOSPHAMIDE
     Indication: Hodgkin^s disease
  11. DACARBAZINE [Concomitant]
     Active Substance: DACARBAZINE
     Indication: Hodgkin^s disease

REACTIONS (5)
  - Neutropenia [Recovered/Resolved]
  - Thrombocytopenia [Recovered/Resolved]
  - Hepatotoxicity [Recovered/Resolved]
  - Anaemia [Recovered/Resolved]
  - Product use in unapproved indication [Unknown]
